FAERS Safety Report 19831913 (Version 1)
Quarter: 2021Q3

REPORT INFORMATION
  Report Type: Spontaneous
  Country: PL (occurrence: PL)
  Receive Date: 20210915
  Receipt Date: 20210915
  Transmission Date: 20211014
  Serious: Yes (Other)
  Sender: FDA-Public Use
  Company Number: PL-009507513-2109POL002381

PATIENT
  Age: 84 Year
  Sex: Male

DRUGS (2)
  1. PEMBROLIZUMAB. [Suspect]
     Active Substance: PEMBROLIZUMAB
     Indication: MALIGNANT MELANOMA
     Dosage: UNK
     Dates: start: 201704
  2. PEMBROLIZUMAB. [Suspect]
     Active Substance: PEMBROLIZUMAB
     Dosage: UNK
     Dates: start: 202001

REACTIONS (5)
  - Adenocarcinoma of colon [Unknown]
  - Therapy partial responder [Unknown]
  - Therapy partial responder [Unknown]
  - Vitiligo [Unknown]
  - Colon cancer [Unknown]

NARRATIVE: CASE EVENT DATE: 201707
